FAERS Safety Report 5963990-1 (Version None)
Quarter: 2008Q4

REPORT INFORMATION
  Report Type: 
  Country: None (occurrence: None)
  Receive Date: 20081119
  Receipt Date: 20080922
  Transmission Date: 20090506
  Serious: No
  Sender: FDA-Public Use
  Company Number: WAES 0809USA03864

PATIENT
  Age: 55 Year
  Sex: Male

DRUGS (7)
  1. JANUVIA [Suspect]
     Indication: DIABETES MELLITUS
     Dosage: 100 MG/DAILY/PO
     Route: 048
     Dates: start: 20080901
  2. GLUCOPHAGE [Suspect]
     Dosage: 500 MG : 1000 MG
     Dates: start: 20080901, end: 20080901
  3. GLUCOPHAGE [Suspect]
     Dosage: 500 MG : 1000 MG
     Dates: end: 20080901
  4. GLYBURIDE [Suspect]
     Dates: end: 20080901
  5. CLONIDINE [Concomitant]
  6. LISINOPRIL [Concomitant]
  7. TRAMADOL HYDROCHLORIDE [Concomitant]

REACTIONS (4)
  - ABDOMINAL PAIN [None]
  - CONSTIPATION [None]
  - DIZZINESS [None]
  - HYPERHIDROSIS [None]
